FAERS Safety Report 12983595 (Version 2)
Quarter: 2016Q4

REPORT INFORMATION
  Report Type: Spontaneous
  Country: NZ (occurrence: NZ)
  Receive Date: 20161129
  Receipt Date: 20161207
  Transmission Date: 20170207
  Serious: Yes (Disabling)
  Sender: FDA-Public Use
  Company Number: NZ-ABBVIE-16P-118-1787921-00

PATIENT
  Age: 58 Year
  Sex: Female

DRUGS (4)
  1. VIEKIRA PAK [Suspect]
     Active Substance: DASABUVIR\OMBITASVIR\PARITAPREVIR\RITONAVIR
     Indication: HEPATITIS C
     Dosage: 75/50/12.5/250MG
     Route: 048
     Dates: start: 20160727, end: 20161019
  2. OMEPRAZOLE. [Concomitant]
     Active Substance: OMEPRAZOLE
     Indication: NAUSEA
     Route: 048
     Dates: start: 20160719
  3. OMEPRAZOLE. [Concomitant]
     Active Substance: OMEPRAZOLE
     Indication: WEIGHT DECREASED
  4. RIBAVIRIN. [Suspect]
     Active Substance: RIBAVIRIN
     Indication: HEPATITIS C
     Dosage: 1000MG
     Route: 048
     Dates: start: 20160727, end: 20161019

REACTIONS (5)
  - Negative thoughts [Recovered/Resolved]
  - Anger [Recovered/Resolved]
  - Depression [Recovered/Resolved]
  - Anxiety [Recovered/Resolved]
  - Aggression [Recovered/Resolved]

NARRATIVE: CASE EVENT DATE: 20160808
